FAERS Safety Report 8278197 (Version 5)
Quarter: 2013Q1

REPORT INFORMATION
  Report Type: Report from Study
  Country: CA (occurrence: CA)
  Receive Date: 20111207
  Receipt Date: 20130201
  Transmission Date: 20140127
  Serious: Yes (Death, Hospitalization, Other)
  Sender: FDA-Public Use
  Company Number: PHHY2011CA102423

PATIENT
  Sex: Female
  Weight: 45 kg

DRUGS (29)
  1. ACLASTA/ZOLEDRONATE [Suspect]
     Indication: OSTEOPOROSIS
     Dosage: 5MG/100 ML
     Route: 042
     Dates: start: 20090214
  2. ACLASTA/ZOLEDRONATE [Suspect]
     Dosage: 5MG/100 ML
     Route: 042
     Dates: start: 20100219
  3. ACLASTA/ZOLEDRONATE [Suspect]
     Dosage: 5MG/100 ML
     Route: 042
     Dates: start: 20110216
  4. ACLASTA/ZOLEDRONATE [Suspect]
     Dosage: 5MG/100 ML
     Route: 042
     Dates: start: 20120327
  5. MIACALCIC [Concomitant]
     Dosage: 200 U, UNK
     Dates: start: 20090105
  6. VITAMIN D [Concomitant]
     Dosage: 800 MG, UNK
     Dates: start: 2000
  7. VITAMIN D [Concomitant]
     Dosage: 400 MG, UNK
     Dates: start: 2000
  8. CALCIUM [Concomitant]
     Dosage: 1000 UNK
     Dates: start: 2000
  9. CALCIUM [Concomitant]
     Dosage: 500 MG, UNK
     Dates: start: 2011
  10. DOMPERIDONE [Concomitant]
     Dosage: UNK
  11. ASA [Concomitant]
     Dosage: 80 MG, UNK
  12. ADALAT XL [Concomitant]
     Dosage: 90 MG, UNK
  13. CLONIDINE [Concomitant]
     Dosage: 1 DF, UNK
  14. SYNTHROID [Concomitant]
     Dosage: 1 DF, UNK
  15. LYRICA [Concomitant]
     Dosage: 1 DF, BID
  16. MONOCOR [Concomitant]
     Dosage: 1 DF, UNK
  17. TYLENOL [Concomitant]
     Dosage: 500 MG, UNK
  18. DIDROCAL [Concomitant]
     Dosage: 400 MG, QD
  19. EVISTA [Concomitant]
     Dosage: 670 MG, QD
  20. HORMONES [Concomitant]
     Dosage: UNK, QD
  21. FORTEO [Concomitant]
     Dosage: 20 MG, QD
  22. SEROQUEL [Concomitant]
     Dosage: 50 MG, UNK
  23. SERAX [Concomitant]
     Dosage: 0.5 DF, UNK
  24. MOTILIUM [Concomitant]
     Dosage: 1 DF, BID
  25. RETISOL [Concomitant]
  26. OXYCODONE [Concomitant]
     Dosage: 5 MG, UNK
  27. NITRODUR [Concomitant]
  28. ACETYLSALICYLIC ACID [Concomitant]
     Dosage: 1 DF, UNK
  29. LASIX SPECIAL [Concomitant]
     Dosage: 0.5 DF, BID

REACTIONS (7)
  - Coronary artery disease [Fatal]
  - Sense of oppression [Unknown]
  - Oedema peripheral [Unknown]
  - Dyspnoea [Unknown]
  - Lumbar vertebral fracture [Not Recovered/Not Resolved]
  - Renal failure chronic [Not Recovered/Not Resolved]
  - Creatinine renal clearance decreased [Not Recovered/Not Resolved]
